FAERS Safety Report 9717845 (Version 1)
Quarter: 2013Q4

REPORT INFORMATION
  Report Type: Spontaneous
  Country: US (occurrence: US)
  Receive Date: 20131125
  Receipt Date: 20131125
  Transmission Date: 20140711
  Serious: No
  Sender: FDA-Public Use
  Company Number: US-VIVUS-2012V1000271

PATIENT
  Age: 42 Year
  Sex: Female
  Weight: 177.06 kg

DRUGS (6)
  1. QSYMIA 7.5MG/46MG [Suspect]
     Indication: OBESITY
     Route: 048
     Dates: start: 201211, end: 201211
  2. SYNTHYROID [Concomitant]
     Indication: HYPOTHYROIDISM
     Route: 048
  3. DESMOPRESSIN [Concomitant]
     Indication: DIABETES INSIPIDUS
     Dosage: DAILY DOSE: 3 PUFF, DRUG ROUTE: INHALATION
  4. VENLAFAXINE [Concomitant]
     Indication: AFFECTIVE DISORDER
     Route: 048
     Dates: start: 2010
  5. HUMATROPE [Concomitant]
     Indication: HORMONE REPLACEMENT THERAPY
     Dates: start: 2010
  6. ASPIRIN [Concomitant]
     Indication: THROMBOSIS
     Route: 048

REACTIONS (3)
  - Somnolence [Recovered/Resolved]
  - Fatigue [Recovered/Resolved]
  - Inappropriate schedule of drug administration [Recovered/Resolved]
